FAERS Safety Report 21885778 (Version 2)
Quarter: 2023Q1

REPORT INFORMATION
  Report Type: Spontaneous
  Country: DE (occurrence: DE)
  Receive Date: 20230119
  Receipt Date: 20230124
  Transmission Date: 20230418
  Serious: Yes (Other)
  Sender: FDA-Public Use
  Company Number: DE-ORGANON-O2301DEU001523

PATIENT
  Age: 58 Year
  Sex: Male

DRUGS (1)
  1. EBASTINE [Suspect]
     Active Substance: EBASTINE
     Dosage: UNK
     Route: 048

REACTIONS (6)
  - Mast cell activation syndrome [Recovering/Resolving]
  - Flatulence [Not Recovered/Not Resolved]
  - Histamine level increased [Recovering/Resolving]
  - Fructose intolerance [Not Recovered/Not Resolved]
  - Lactose intolerance [Not Recovered/Not Resolved]
  - Discomfort [Unknown]
